FAERS Safety Report 10950627 (Version 2)
Quarter: 2015Q1

REPORT INFORMATION
  Report Type: Spontaneous
  Country: JP (occurrence: JP)
  Receive Date: 20150324
  Receipt Date: 20150327
  Transmission Date: 20150721
  Serious: Yes (Death)
  Sender: FDA-Public Use
  Company Number: JP-PFIZER INC-2015085614

PATIENT
  Age: 6 Decade
  Sex: Male

DRUGS (1)
  1. SUTENT [Suspect]
     Active Substance: SUNITINIB MALATE
     Indication: RENAL CELL CARCINOMA
     Route: 048

REACTIONS (2)
  - Disease progression [Fatal]
  - Renal cell carcinoma [Fatal]
